FAERS Safety Report 5124246-2 (Version None)
Quarter: 2006Q4

REPORT INFORMATION
  Report Type: 
  Country: None (occurrence: None)
  Receive Date: 20061010
  Receipt Date: 20060927
  Transmission Date: 20070319
  Serious: Yes (Life-Threatening)
  Sender: FDA-Public Use
  Company Number: IT-BRISTOL-MYERS SQUIBB COMPANY-13531439

PATIENT
  Age: 61 Year
  Sex: Female

DRUGS (1)
  1. ERBITUX [Suspect]
     Indication: COLORECTAL CANCER
     Route: 042
     Dates: start: 20060919, end: 20060919

REACTIONS (2)
  - GENERALISED ERYTHEMA [None]
  - RESPIRATORY FAILURE [None]
